FAERS Safety Report 25499305 (Version 2)
Quarter: 2025Q3

REPORT INFORMATION
  Report Type: Spontaneous
  Country: US (occurrence: US)
  Receive Date: 20250701
  Receipt Date: 20250728
  Transmission Date: 20251021
  Serious: Yes (Other)
  Sender: TEVA
  Company Number: US-TEVA-VS-3346605

PATIENT

DRUGS (1)
  1. AMPHETAMINE\DEXTROAMPHETAMINE [Suspect]
     Active Substance: AMPHETAMINE\DEXTROAMPHETAMINE
     Indication: Attention deficit hyperactivity disorder
     Dosage: AMPHETAMINE SALTS ER 20 MG, EXTENDED RELEASE CAPSULE
     Route: 065
     Dates: start: 202506

REACTIONS (16)
  - Depression [Unknown]
  - Fatigue [Unknown]
  - Drug effect less than expected [Unknown]
  - Apathy [Unknown]
  - Headache [Unknown]
  - Irritability [Unknown]
  - Constipation [Unknown]
  - Anxiety [Unknown]
  - Decreased interest [Unknown]
  - Mental disorder [Unknown]
  - Psychomotor hyperactivity [Unknown]
  - Insomnia [Unknown]
  - Loss of personal independence in daily activities [Unknown]
  - Initial insomnia [Unknown]
  - Insurance issue [Unknown]
  - Drug ineffective [Unknown]

NARRATIVE: CASE EVENT DATE: 20250601
